FAERS Safety Report 4981993-0 (Version None)
Quarter: 2006Q2

REPORT INFORMATION
  Report Type: 
  Country: None (occurrence: None)
  Receive Date: 20060425
  Receipt Date: 20050113
  Transmission Date: 20061013
  Serious: Yes (Hospitalization)
  Sender: FDA-Public Use
  Company Number: US-MERCK-0501USA02265

PATIENT
  Age: 62 Year
  Sex: Female
  Weight: 118 kg

DRUGS (2)
  1. VIOXX [Suspect]
     Indication: ARTHRALGIA
     Route: 048
     Dates: start: 20010918, end: 20020211
  2. VIOXX [Suspect]
     Route: 048
     Dates: start: 20010412, end: 20010512

REACTIONS (5)
  - ANGIOPATHY [None]
  - ARRHYTHMIA [None]
  - HAEMORRHAGIC STROKE [None]
  - PULMONARY EMBOLISM [None]
  - THROMBOTIC STROKE [None]
